FAERS Safety Report 25288568 (Version 1)
Quarter: 2025Q2

REPORT INFORMATION
  Report Type: Spontaneous
  Country: CN (occurrence: CN)
  Receive Date: 20250509
  Receipt Date: 20250509
  Transmission Date: 20250716
  Serious: Yes (Hospitalization, Other)
  Sender: PFIZER
  Company Number: CN-PFIZER INC-PV202500054177

PATIENT
  Age: 66 Year
  Sex: Male
  Weight: 50 kg

DRUGS (3)
  1. EPIRUBICIN [Suspect]
     Active Substance: EPIRUBICIN
     Indication: Pancreatic carcinoma
     Dosage: 60 MG, 1X/DAY
     Dates: start: 20250414, end: 20250414
  2. MITOMYCIN [Concomitant]
     Active Substance: MITOMYCIN
     Indication: Pancreatic carcinoma
     Dosage: 10 MG, 1X/DAY
     Route: 041
     Dates: start: 20250414, end: 20250414
  3. CISPLATIN [Concomitant]
     Active Substance: CISPLATIN
     Indication: Pancreatic carcinoma
     Dosage: 50 MG, 1X/DAY
     Route: 041
     Dates: start: 20250414, end: 20250414

REACTIONS (4)
  - Platelet count decreased [Recovering/Resolving]
  - White blood cell count decreased [Recovering/Resolving]
  - Haemorrhage subcutaneous [Recovering/Resolving]
  - Ecchymosis [Recovering/Resolving]

NARRATIVE: CASE EVENT DATE: 20250424
